FAERS Safety Report 9534654 (Version 3)
Quarter: 2014Q1

REPORT INFORMATION
  Report Type: Report from Study
  Country: AU (occurrence: AU)
  Receive Date: 20130918
  Receipt Date: 20140205
  Transmission Date: 20141002
  Serious: Yes (Other)
  Sender: FDA-Public Use
  Company Number: AU-ROCHE-1273766

PATIENT
  Age: 52 Year
  Sex: Female

DRUGS (11)
  1. ACTEMRA [Suspect]
     Indication: RHEUMATOID ARTHRITIS
     Route: 042
     Dates: start: 20130910, end: 20130911
  2. METHOTREXATE [Concomitant]
     Indication: RHEUMATOID ARTHRITIS
  3. SEROQUEL [Concomitant]
     Indication: BIPOLAR DISORDER
     Dosage: NOCTE
     Route: 065
     Dates: start: 2007
  4. EPILIM [Concomitant]
     Indication: BIPOLAR DISORDER
     Route: 065
  5. AROPAX [Concomitant]
     Dosage: MANE
     Route: 065
  6. COVERSYL [Concomitant]
     Dosage: MANE
     Route: 065
  7. PARIET [Concomitant]
     Dosage: MANE
     Route: 065
  8. OXYCONTIN [Concomitant]
     Route: 065
  9. LIPITOR [Concomitant]
     Dosage: NOCTE
     Route: 065
  10. PANADEINE FORTE [Concomitant]
     Dosage: AS REQUIRED
     Route: 065
  11. AMOXYLIN [Concomitant]
     Indication: TOOTH INFECTION
     Route: 065

REACTIONS (3)
  - Syncope [Recovered/Resolved]
  - Headache [Unknown]
  - Loss of consciousness [Unknown]
